FAERS Safety Report 16041414 (Version 1)
Quarter: 2019Q1

REPORT INFORMATION
  Report Type: Spontaneous
  Country: US (occurrence: US)
  Receive Date: 20190306
  Receipt Date: 20190306
  Transmission Date: 20190418
  Serious: No
  Sender: FDA-Public Use
  Company Number: US-AKORN PHARMACEUTICALS-2018AKN02091

PATIENT
  Age: 24 Year
  Sex: Female

DRUGS (3)
  1. ORTHO TRI CYCLEN [Concomitant]
     Active Substance: ETHINYL ESTRADIOL\NORGESTIMATE
     Dosage: UNK
     Dates: start: 20180404
  2. MYORISAN [Suspect]
     Active Substance: ISOTRETINOIN
     Indication: ACNE
     Dosage: 20 MG, 2X/DAY
     Route: 048
     Dates: start: 20181201, end: 20181210
  3. MYORISAN [Suspect]
     Active Substance: ISOTRETINOIN
     Dosage: 20 MG, ONCE
     Route: 048
     Dates: start: 20181213, end: 20181213

REACTIONS (4)
  - Visual impairment [Recovered/Resolved]
  - Chest pain [Recovered/Resolved]
  - Vision blurred [Recovered/Resolved]
  - Costochondritis [Recovered/Resolved]

NARRATIVE: CASE EVENT DATE: 20181205
